FAERS Safety Report 8103754-6 (Version None)
Quarter: 2012Q1

REPORT INFORMATION
  Report Type: 
  Country: None (occurrence: None)
  Receive Date: 20120201
  Receipt Date: 20120123
  Transmission Date: 20120608
  Serious: Yes (Life-Threatening, Hospitalization)
  Sender: FDA-Public Use
  Company Number: US-GENZYME-FABR-1002335

PATIENT
  Sex: Male
  Weight: 81.3 kg

DRUGS (8)
  1. FABRAZYME [Suspect]
     Indication: FABRY'S DISEASE
     Dosage: 80 MG, Q2W
     Route: 042
     Dates: start: 20110526
  2. VICODIN [Concomitant]
     Indication: PRODUCT USED FOR UNKNOWN INDICATION
     Dosage: 5 MG 10-12 TABLETS, QD
     Route: 048
  3. PREDNISONE TAB [Concomitant]
     Indication: PRODUCT USED FOR UNKNOWN INDICATION
     Dosage: UNK
  4. CLARITIN [Concomitant]
     Indication: PREMEDICATION
     Dosage: 10 MG, UNK
     Route: 048
  5. LOVENOX [Concomitant]
     Indication: DEEP VEIN THROMBOSIS
     Dosage: UNK
     Route: 058
  6. BENADRYL [Concomitant]
     Indication: PREMEDICATION
     Dosage: 25 MG, UNK
     Route: 048
  7. ACETAMINOPHEN [Concomitant]
     Indication: PREMEDICATION
     Dosage: 1000 MG, UNK
     Route: 048
  8. EXCEDRIN (MIGRAINE) [Concomitant]
     Dosage: 8 TABLETS, QD
     Route: 048

REACTIONS (2)
  - INTESTINAL PERFORATION [None]
  - SEPTIC SHOCK [None]
